FAERS Safety Report 17193916 (Version 1)
Quarter: 2019Q4

REPORT INFORMATION
  Report Type: Report from Study
  Country: US (occurrence: US)
  Receive Date: 20191223
  Receipt Date: 20191223
  Transmission Date: 20200122
  Serious: Yes (Other)
  Sender: FDA-Public Use
  Company Number: PHHY2019US193289

PATIENT
  Age: 44 Year
  Sex: Female

DRUGS (1)
  1. GILENYA [Suspect]
     Active Substance: FINGOLIMOD HYDROCHLORIDE
     Indication: MULTIPLE SCLEROSIS
     Dosage: UNK, QD
     Route: 048

REACTIONS (9)
  - Cellulitis [Recovered/Resolved]
  - Seborrhoeic keratosis [Unknown]
  - Haemangioma of skin [Unknown]
  - Gastrointestinal pain [Unknown]
  - Solar lentigo [Unknown]
  - Photosensitivity reaction [Unknown]
  - Melanocytic naevus [Unknown]
  - Dysphonia [Unknown]
  - Muscle spasticity [Unknown]

NARRATIVE: CASE EVENT DATE: 20181206
